FAERS Safety Report 12728287 (Version 1)
Quarter: 2016Q3

REPORT INFORMATION
  Report Type: Spontaneous
  Country: US (occurrence: US)
  Receive Date: 20160907
  Receipt Date: 20160907
  Transmission Date: 20161109
  Serious: Yes (Hospitalization)
  Sender: FDA-Public Use
  Company Number: None

PATIENT
  Age: 14 Year
  Sex: Male
  Weight: 50.7 kg

DRUGS (16)
  1. MIRALAX [Concomitant]
     Active Substance: POLYETHYLENE GLYCOL 3350
  2. ADVAIR DISKUS [Concomitant]
     Active Substance: FLUTICASONE PROPIONATE\SALMETEROL XINAFOATE
  3. AZTREONAM (CAYSTON) [Concomitant]
  4. DORNASE ALFA [Concomitant]
     Active Substance: DORNASE ALFA
  5. ERGOCALCIFEROL. [Concomitant]
     Active Substance: ERGOCALCIFEROL
  6. INSULIN DETEMIR (LEVEMIR) [Concomitant]
  7. INSULIN LISPRO (HUMALOG) [Concomitant]
  8. VITAMINS, MULTIPLE (AQUADEKS) [Concomitant]
  9. ZOLOFT [Concomitant]
     Active Substance: SERTRALINE HYDROCHLORIDE
  10. INSULIN LISPRO (HUMALOG) [Concomitant]
  11. METHYLPHENIDATE. [Concomitant]
     Active Substance: METHYLPHENIDATE
  12. VITAMIN A [Concomitant]
     Active Substance: VITAMIN A
  13. ORKAMBI [Suspect]
     Active Substance: IVACAFTOR\LUMACAFTOR
     Indication: CYSTIC FIBROSIS
     Route: 048
     Dates: start: 20151021, end: 20151122
  14. ALBUTEROL. [Suspect]
     Active Substance: ALBUTEROL
  15. OMEPRAZOLE. [Concomitant]
     Active Substance: OMEPRAZOLE
  16. SODIUM CHLORIDE. [Concomitant]
     Active Substance: SODIUM CHLORIDE

REACTIONS (2)
  - Hyperammonaemia [None]
  - Hepatic encephalopathy [None]

NARRATIVE: CASE EVENT DATE: 20151122
